FAERS Safety Report 8830799 (Version 1)
Quarter: 2012Q4

REPORT INFORMATION
  Report Type: 
  Country: GR (occurrence: GR)
  Receive Date: 20121009
  Receipt Date: 20121009
  Transmission Date: 20130627
  Serious: Yes (Life-Threatening, Hospitalization, Other)
  Sender: FDA-Public Use
  Company Number: GR-UCBSA-068255

PATIENT
  Age: 47 Year
  Sex: Female

DRUGS (2)
  1. CIMZIA [Suspect]
     Indication: RHEUMATOID ARTHRITIS
     Dosage: UNKNOWN
  2. METHOTREXATE [Concomitant]
     Dosage: UNKNOWN

REACTIONS (3)
  - Rash generalised [Unknown]
  - Bronchospasm [Unknown]
  - Dyspnoea [Unknown]
